FAERS Safety Report 5818509-2 (Version None)
Quarter: 2008Q3

REPORT INFORMATION
  Report Type: 
  Country: None (occurrence: None)
  Receive Date: 20080718
  Receipt Date: 20080710
  Transmission Date: 20090109
  Serious: Yes (Other)
  Sender: FDA-Public Use
  Company Number: 2008018097

PATIENT
  Age: 60 Year
  Sex: Female
  Weight: 70.3075 kg

DRUGS (1)
  1. FRESHBURST LISTERINE MOUTHWASH (MENTHOL, METHYL SALICYLATE, EUCALYPTOL [Suspect]
     Indication: DENTAL CARE
     Dosage: AS DIRECTED ONCE, ORAL
     Route: 048
     Dates: start: 20080709, end: 20080709

REACTIONS (1)
  - CAUSTIC INJURY [None]
